FAERS Safety Report 9643249 (Version 3)
Quarter: 2014Q1

REPORT INFORMATION
  Report Type: Spontaneous
  Country: JP (occurrence: JP)
  Receive Date: 20131024
  Receipt Date: 20140205
  Transmission Date: 20141002
  Serious: Yes (Hospitalization)
  Sender: FDA-Public Use
  Company Number: JP-ELI_LILLY_AND_COMPANY-JP201307001546

PATIENT
  Age: 80 Year
  Sex: Female
  Weight: 36.5 kg

DRUGS (8)
  1. EVISTA [Suspect]
     Indication: OSTEOPOROSIS POSTMENOPAUSAL
     Dosage: 60 MG, QD
     Route: 048
     Dates: end: 20130626
  2. GASTER [Concomitant]
     Dosage: 40 MG, QD
     Route: 048
  3. MICARDIS [Concomitant]
     Dosage: 40 MG, QD
     Route: 048
  4. CALCIUM [Concomitant]
     Dosage: 200 MG, TID
     Route: 048
  5. ALFAROL [Concomitant]
     Dosage: 0.25 UG, TID
     Route: 048
  6. METHYCOBAL [Concomitant]
     Dosage: 500 UG, TID
     Route: 048
  7. ARTIST [Concomitant]
     Dosage: 10 MG, QD
     Route: 048
  8. NORVASC [Concomitant]
     Dosage: 2.5 MG, UNKNOWN
     Route: 047

REACTIONS (4)
  - Renal haemorrhage [Recovered/Resolved]
  - Platelet count decreased [Recovered/Resolved]
  - Protein urine present [Unknown]
  - Blood urine present [Unknown]
